FAERS Safety Report 12605747 (Version 1)
Quarter: 2016Q3

REPORT INFORMATION
  Report Type: Spontaneous
  Country: JP (occurrence: JP)
  Receive Date: 20160729
  Receipt Date: 20160729
  Transmission Date: 20161109
  Serious: Yes (Death, Other)
  Sender: FDA-Public Use
  Company Number: JP-BRISTOL-MYERS SQUIBB COMPANY-BMS-2016-061166

PATIENT
  Age: 95 Year
  Sex: Male

DRUGS (1)
  1. ELIQUIS [Suspect]
     Active Substance: APIXABAN
     Indication: CEREBROVASCULAR ACCIDENT PROPHYLAXIS
     Dosage: 5 MG, UNK (DAILY)
     Route: 048
     Dates: start: 201505, end: 20150527

REACTIONS (4)
  - Traumatic intracranial haemorrhage [Unknown]
  - Fall [Unknown]
  - Brain contusion [Fatal]
  - Head injury [Unknown]

NARRATIVE: CASE EVENT DATE: 201505
